FAERS Safety Report 7629656-7 (Version None)
Quarter: 2011Q3

REPORT INFORMATION
  Report Type: 
  Country: None (occurrence: None)
  Receive Date: 20110722
  Receipt Date: 20110722
  Transmission Date: 20111222
  Serious: Yes (Other)
  Sender: FDA-Public Use
  Company Number: IT-ROCHE-787288

PATIENT
  Sex: Male

DRUGS (10)
  1. NEXIUM [Concomitant]
     Route: 048
  2. LEVEMIR [Concomitant]
     Dosage: 10 IU
     Route: 058
  3. XELODA [Suspect]
     Indication: GASTRIC CANCER
     Dosage: FREQUENCY:CYCLE.
     Route: 048
     Dates: start: 20110319, end: 20110519
  4. DURAGESIC-12 [Concomitant]
     Route: 062
  5. VALPRESSION [Concomitant]
     Route: 048
  6. ASPIRIN [Concomitant]
     Route: 048
  7. NOVORAPID [Concomitant]
     Dosage: 30 IU
     Route: 058
  8. CRESTOR [Concomitant]
  9. NORVASC [Concomitant]
     Route: 048
  10. BISOPROLOL FUMARATE [Concomitant]

REACTIONS (1)
  - RESPIRATORY FAILURE [None]
